FAERS Safety Report 11370970 (Version 2)
Quarter: 2015Q3

REPORT INFORMATION
  Report Type: Spontaneous
  Country: US (occurrence: US)
  Receive Date: 20150812
  Receipt Date: 20150820
  Transmission Date: 20151125
  Serious: Yes (Other)
  Sender: FDA-Public Use
  Company Number: US-ELI_LILLY_AND_COMPANY-US201508003366

PATIENT
  Sex: Female

DRUGS (2)
  1. CYMBALTA [Suspect]
     Active Substance: DULOXETINE HYDROCHLORIDE
     Indication: DEPRESSION
  2. CYMBALTA [Suspect]
     Active Substance: DULOXETINE HYDROCHLORIDE
     Indication: PAIN

REACTIONS (13)
  - Insomnia [Unknown]
  - Fatigue [Unknown]
  - Fall [Unknown]
  - Paraesthesia [Unknown]
  - Memory impairment [Unknown]
  - Diarrhoea [Unknown]
  - Burning sensation [Unknown]
  - Headache [Unknown]
  - Disturbance in attention [Unknown]
  - Drug withdrawal syndrome [Unknown]
  - Discomfort [Unknown]
  - Vertigo [Unknown]
  - Confusional state [Unknown]
